FAERS Safety Report 9651797 (Version 3)
Quarter: 2013Q4

REPORT INFORMATION
  Report Type: Report from Study
  Country: US (occurrence: US)
  Receive Date: 20131029
  Receipt Date: 20131205
  Transmission Date: 20140711
  Serious: Yes (Other)
  Sender: FDA-Public Use
  Company Number: US-SANOFI-AVENTIS-2013SA009541

PATIENT
  Age: 68 Year
  Sex: Female

DRUGS (9)
  1. AUBAGIO [Suspect]
     Indication: MULTIPLE SCLEROSIS
     Route: 048
     Dates: start: 20130109
  2. AUBAGIO [Suspect]
     Indication: MULTIPLE SCLEROSIS
     Route: 065
     Dates: start: 20130605
  3. EFFEXOR [Suspect]
  4. CYMBALTA [Suspect]
  5. ATENOLOL [Concomitant]
  6. LISINOPRIL [Concomitant]
     Dates: end: 2013
  7. LISINOPRIL [Concomitant]
     Dates: start: 2013
  8. SPIRONOLACTONE [Concomitant]
  9. PROVIGIL [Concomitant]

REACTIONS (5)
  - Trigeminal neuralgia [Unknown]
  - Hypertension [Not Recovered/Not Resolved]
  - Memory impairment [Unknown]
  - Fatigue [Unknown]
  - Intervertebral disc protrusion [Unknown]
